FAERS Safety Report 20134790 (Version 1)
Quarter: 2021Q4

REPORT INFORMATION
  Report Type: Spontaneous
  Country: US (occurrence: None)
  Receive Date: 20211130
  Receipt Date: 20211130
  Transmission Date: 20220303
  Serious: Yes (Hospitalization)
  Sender: FDA-Public Use
  Company Number: None

PATIENT
  Age: 56 Year
  Sex: Female

DRUGS (1)
  1. COPAXONE [Suspect]
     Active Substance: GLATIRAMER ACETATE
     Indication: Multiple sclerosis
     Dosage: OTHER QUANTITY : 40 MG/ML;?FREQUENCY : 3 TIMES A WEEK;?
     Route: 058
     Dates: start: 20131204

REACTIONS (1)
  - Spinal nerve stimulator implantation [None]

NARRATIVE: CASE EVENT DATE: 20211109
